FAERS Safety Report 4375744-0 (Version None)
Quarter: 2004Q2

REPORT INFORMATION
  Report Type: 
  Country: None (occurrence: None)
  Receive Date: 20040607
  Receipt Date: 20040603
  Transmission Date: 20050107
  Serious: Yes (Other)
  Sender: FDA-Public Use
  Company Number: GBWYE780225MAY04

PATIENT
  Sex: Female

DRUGS (7)
  1. PREMARIN (CONJUGATED ESTROGENS, UNSPEC, 0) [Suspect]
  2. AUGMENTIN (AMOXICILLIN SODIUM/CLAVULANATE POTASSIUM, INJECTION, 0) [Suspect]
  3. CO-DYDRAMOL (DIHYDROCODEINE BITARTRATE/PARACETAMOL, ,0) [Suspect]
  4. FLUOXETINE (FLUOXETINE, ,0) [Suspect]
  5. HUMIRA (ADALIMUMAB, ,0) [Suspect]
  6. METHOTREXATE [Suspect]
  7. ROFECOXIB (ROFECOXIB, ,0) [Suspect]

REACTIONS (1)
  - RETINAL HAEMORRHAGE [None]
